FAERS Safety Report 16127460 (Version 3)
Quarter: 2019Q3

REPORT INFORMATION
  Report Type: Spontaneous
  Country: US (occurrence: US)
  Receive Date: 20190328
  Receipt Date: 20190904
  Transmission Date: 20191004
  Serious: No
  Sender: FDA-Public Use
  Company Number: US-PFIZER INC-2019112107

PATIENT
  Age: 59 Year
  Sex: Male
  Weight: 80.73 kg

DRUGS (5)
  1. LYRICA [Suspect]
     Active Substance: PREGABALIN
     Indication: HERPES ZOSTER
  2. LYRICA [Suspect]
     Active Substance: PREGABALIN
     Indication: PAIN
     Dosage: 25 MG, 1X/DAY (AT NIGHT FOR ONE WEEK)
     Route: 048
     Dates: start: 20190307, end: 20190313
  3. LYRICA [Suspect]
     Active Substance: PREGABALIN
     Indication: MYOSITIS
  4. LYRICA [Suspect]
     Active Substance: PREGABALIN
     Indication: FIBROMYALGIA
     Dosage: 25 MG, 2X/DAY (FOR ONE WEEK)
     Route: 048
  5. LYRICA [Suspect]
     Active Substance: PREGABALIN
     Indication: MYALGIA
     Dosage: 25 MG, 3X/DAY
     Route: 048

REACTIONS (3)
  - Memory impairment [Unknown]
  - Irritable bowel syndrome [Unknown]
  - Therapeutic product effect incomplete [Unknown]
